FAERS Safety Report 9314975 (Version 4)
Quarter: 2013Q3

REPORT INFORMATION
  Report Type: Spontaneous
  Country: JP (occurrence: JP)
  Receive Date: 20130529
  Receipt Date: 20130711
  Transmission Date: 20140515
  Serious: Yes (Hospitalization, Other)
  Sender: FDA-Public Use
  Company Number: JP-UCBSA-086969

PATIENT
  Age: 63 Year
  Sex: Female
  Weight: 39 kg

DRUGS (8)
  1. CIMZIA [Suspect]
     Indication: RHEUMATOID ARTHRITIS
     Route: 058
     Dates: start: 20130321, end: 20130430
  2. CIMZIA [Suspect]
     Indication: RHEUMATOID ARTHRITIS
     Route: 058
     Dates: start: 20090418, end: 20130321
  3. VOLTAREN [Suspect]
     Indication: RHEUMATOID ARTHRITIS
     Dosage: DAILY DOSE-50 MG
     Route: 048
     Dates: start: 20080606
  4. TAKEPRON [Suspect]
     Indication: PROPHYLAXIS AGAINST GASTROINTESTINAL ULCER
     Dosage: DAILY DOSE-15 MG
     Route: 048
     Dates: start: 20080606
  5. PREDNISOLONE [Suspect]
     Indication: RHEUMATOID ARTHRITIS
     Dosage: DAILY DOSE: 5MG
     Route: 048
     Dates: start: 20080606
  6. CYTOTEC [Concomitant]
     Indication: PROPHYLAXIS AGAINST GASTROINTESTINAL ULCER
     Dosage: DAILY DOSE: 400MG
     Route: 048
     Dates: start: 20080606
  7. CESFALKO [Concomitant]
     Indication: PROPHYLAXIS AGAINST GASTROINTESTINAL ULCER
     Dosage: DAILY DOSE: 200MG
     Route: 048
     Dates: start: 20080606
  8. SALAGEN [Concomitant]
     Indication: SJOGREN^S SYNDROME
     Dosage: DAILY DOSE: 5MG
     Route: 048
     Dates: start: 2012

REACTIONS (1)
  - Colitis microscopic [Recovered/Resolved]
